FAERS Safety Report 18522134 (Version 11)
Quarter: 2022Q3

REPORT INFORMATION
  Report Type: Report from Study
  Country: US (occurrence: US)
  Receive Date: 20201119
  Receipt Date: 20220913
  Transmission Date: 20221027
  Serious: Yes (Other)
  Sender: FDA-Public Use
  Company Number: None

PATIENT
  Sex: Female

DRUGS (5)
  1. COSENTYX [Suspect]
     Active Substance: SECUKINUMAB
     Indication: Psoriasis
     Dosage: 300 MG, QW
     Route: 058
  2. COSENTYX [Suspect]
     Active Substance: SECUKINUMAB
     Indication: Psoriatic arthropathy
     Dosage: 150 MG, QW
     Route: 058
  3. COSENTYX [Suspect]
     Active Substance: SECUKINUMAB
     Dosage: 300 MG, QW
     Route: 058
     Dates: start: 20220114
  4. COSENTYX [Suspect]
     Active Substance: SECUKINUMAB
     Dosage: 300 MG, QMO
     Route: 058
  5. COSENTYX [Suspect]
     Active Substance: SECUKINUMAB
     Dosage: 2 DOSAGE FORM (CONCENTRATION: 150/1 MG/ML)
     Route: 065

REACTIONS (9)
  - Lung carcinoma cell type unspecified stage I [Unknown]
  - Cardiac failure [Unknown]
  - Decreased immune responsiveness [Unknown]
  - Pruritus [Unknown]
  - Visual impairment [Unknown]
  - Syringe issue [Unknown]
  - Device defective [Unknown]
  - Accidental exposure to product [Unknown]
  - Incorrect dose administered [Unknown]
